FAERS Safety Report 11295322 (Version 1)
Quarter: 2015Q3

REPORT INFORMATION
  Report Type: Spontaneous
  Country: US (occurrence: US)
  Receive Date: 20150722
  Receipt Date: 20150722
  Transmission Date: 20151125
  Serious: No
  Sender: FDA-Public Use
  Company Number: US-ELI_LILLY_AND_COMPANY-US200811002162

PATIENT
  Age: 63 Year
  Sex: Female

DRUGS (4)
  1. PREVACID [Concomitant]
     Active Substance: LANSOPRAZOLE
     Indication: GASTROOESOPHAGEAL REFLUX DISEASE
     Dosage: 15 MG, UNKNOWN
     Route: 065
  2. EVISTA [Suspect]
     Active Substance: RALOXIFENE HYDROCHLORIDE
     Dosage: UNK, QOD
     Route: 065
  3. EVISTA [Suspect]
     Active Substance: RALOXIFENE HYDROCHLORIDE
     Indication: OSTEOPOROSIS
     Dosage: UNK, DAILY (1/D)
     Route: 065
     Dates: start: 2003, end: 200804
  4. EVISTA [Suspect]
     Active Substance: RALOXIFENE HYDROCHLORIDE
     Dosage: UNK, UNKNOWN
     Route: 065
     Dates: start: 200806, end: 20081105

REACTIONS (12)
  - Hypersensitivity [Recovering/Resolving]
  - Food allergy [Recovering/Resolving]
  - Heart rate increased [Recovering/Resolving]
  - Nausea [Recovering/Resolving]
  - Influenza like illness [Recovering/Resolving]
  - Diarrhoea [Recovering/Resolving]
  - Feeling abnormal [Recovering/Resolving]
  - Blister [Recovering/Resolving]
  - Flushing [Recovering/Resolving]
  - Rash generalised [Recovering/Resolving]
  - Gastrooesophageal reflux disease [Unknown]
  - Headache [Recovering/Resolving]

NARRATIVE: CASE EVENT DATE: 2006
